FAERS Safety Report 17478988 (Version 4)
Quarter: 2020Q2

REPORT INFORMATION
  Report Type: Report from Study
  Country: US (occurrence: US)
  Receive Date: 20200228
  Receipt Date: 20200430
  Transmission Date: 20200713
  Serious: Yes (Hospitalization, Other)
  Sender: FDA-Public Use
  Company Number: US-PFIZER INC-2019475341

PATIENT
  Age: 61 Year
  Sex: Female

DRUGS (1)
  1. IBRANCE [Suspect]
     Active Substance: PALBOCICLIB
     Indication: BREAST CANCER METASTATIC
     Dosage: 125 MG, 1X/DAY(CYCLIC , 21 DAYS ON, 7 DAYS OFF)
     Route: 048
     Dates: start: 20191026

REACTIONS (11)
  - Nephrolithiasis [Unknown]
  - Dry throat [Recovered/Resolved]
  - Throat irritation [Recovered/Resolved]
  - Renal impairment [Unknown]
  - Nausea [Unknown]
  - Product dose omission [Unknown]
  - Blood count abnormal [Not Recovered/Not Resolved]
  - Red blood cell count abnormal [Unknown]
  - Cough [Recovered/Resolved]
  - Fatigue [Not Recovered/Not Resolved]
  - Nasopharyngitis [Recovered/Resolved]

NARRATIVE: CASE EVENT DATE: 2019
